FAERS Safety Report 22255628 (Version 1)
Quarter: 2023Q2

REPORT INFORMATION
  Report Type: Spontaneous
  Country: US (occurrence: US)
  Receive Date: 20230426
  Receipt Date: 20230426
  Transmission Date: 20230722
  Serious: No
  Sender: FDA-Public Use
  Company Number: US-FreseniusKabi-FK202304828

PATIENT
  Age: 14 Year
  Sex: Female
  Weight: 68 kg

DRUGS (2)
  1. EPINEPHRINE BITARTRATE\LIDOCAINE HYDROCHLORIDE [Suspect]
     Active Substance: EPINEPHRINE BITARTRATE\LIDOCAINE HYDROCHLORIDE
     Indication: Local anaesthesia
     Dosage: FREQUENCY: ONCE?XYLOCAINE WITH EPI 1:100,00
     Route: 058
     Dates: start: 20230411, end: 20230411
  2. SODIUM BICARBONATE [Suspect]
     Active Substance: SODIUM BICARBONATE
     Indication: Local anaesthesia
     Dosage: FREQUENCY: ONCE
     Route: 058
     Dates: start: 20230411, end: 20230411

REACTIONS (5)
  - Injection site erythema [Recovering/Resolving]
  - Pallor [Recovering/Resolving]
  - Off label use [None]
  - Off label use [None]
  - Injection site vesicles [Recovering/Resolving]

NARRATIVE: CASE EVENT DATE: 20230411
